FAERS Safety Report 8960732 (Version 3)
Quarter: 2013Q1

REPORT INFORMATION
  Report Type: Spontaneous
  Country: US (occurrence: US)
  Receive Date: 20121212
  Receipt Date: 20130226
  Transmission Date: 20140127
  Serious: Yes (Other)
  Sender: FDA-Public Use
  Company Number: US-PFIZER INC-2012307688

PATIENT
  Age: 80 Year
  Sex: Male
  Weight: 88.44 kg

DRUGS (7)
  1. SUTENT [Suspect]
     Indication: RENAL CELL CARCINOMA
     Dosage: 50 MG, UNK
     Dates: start: 20121126
  2. SUTENT [Suspect]
     Dosage: 37.5 MG (12.5MG +25MG)
  3. FLONASE [Concomitant]
     Dosage: UNK
  4. ZOFRAN [Concomitant]
     Dosage: UNK
  5. ROYAL JELLY [Concomitant]
     Dosage: UNK
  6. L-LYSINE [Concomitant]
  7. BISMUTH SUBNITRATE [Concomitant]

REACTIONS (20)
  - Diverticulitis [Unknown]
  - Diabetes mellitus [Unknown]
  - Diarrhoea [Recovered/Resolved]
  - Dysgeusia [Unknown]
  - Constipation [Unknown]
  - Parosmia [Unknown]
  - Dizziness [Unknown]
  - Epistaxis [Unknown]
  - Contusion [Unknown]
  - Pain in extremity [Unknown]
  - Skin fissures [Unknown]
  - Skin exfoliation [Unknown]
  - Gait disturbance [Unknown]
  - Pain [Unknown]
  - Yellow skin [Unknown]
  - Swollen tongue [Unknown]
  - Glossodynia [Unknown]
  - Nausea [Unknown]
  - Abdominal discomfort [Unknown]
  - Diarrhoea [Unknown]
